FAERS Safety Report 11915550 (Version 1)
Quarter: 2016Q1

REPORT INFORMATION
  Report Type: Spontaneous
  Country: GB (occurrence: GB)
  Receive Date: 20160114
  Receipt Date: 20160114
  Transmission Date: 20160526
  Serious: Yes (Disabling)
  Sender: FDA-Public Use
  Company Number: GB-009507513-1601GBR002557

PATIENT
  Age: 63 Year
  Sex: Male

DRUGS (2)
  1. ANTINEOPLASTIC (UNSPECIFIED) [Suspect]
     Active Substance: UNSPECIFIED INGREDIENT
     Indication: LUNG NEOPLASM MALIGNANT
     Dosage: UNK
  2. DEXAMETHASONE. [Suspect]
     Active Substance: DEXAMETHASONE
     Indication: DECREASED APPETITE
     Dosage: UNKNOWN
     Route: 048
     Dates: start: 20141201, end: 20150115

REACTIONS (12)
  - Drug interaction [Unknown]
  - Psychotic disorder [Recovered/Resolved with Sequelae]
  - Condition aggravated [Unknown]
  - Decreased appetite [Recovered/Resolved]
  - Fear [Recovered/Resolved with Sequelae]
  - Illogical thinking [Unknown]
  - Paranoia [Recovered/Resolved with Sequelae]
  - Amnesia [Recovered/Resolved with Sequelae]
  - Off label use [Unknown]
  - Depression [Recovered/Resolved with Sequelae]
  - Mania [Recovered/Resolved with Sequelae]
  - Insomnia [Unknown]

NARRATIVE: CASE EVENT DATE: 20141208
